FAERS Safety Report 21155845 (Version 2)
Quarter: 2022Q3

REPORT INFORMATION
  Report Type: Spontaneous
  Country: US (occurrence: US)
  Receive Date: 20220801
  Receipt Date: 20220907
  Transmission Date: 20221026
  Serious: No
  Sender: FDA-Public Use
  Company Number: US-BRISTOL-MYERS SQUIBB COMPANY-2022-079981

PATIENT
  Age: 37 Year
  Sex: Female

DRUGS (2)
  1. ZEPOSIA [Suspect]
     Active Substance: OZANIMOD HYDROCHLORIDE
     Indication: Colitis ulcerative
     Route: 048
     Dates: start: 20220531
  2. ZEPOSIA [Suspect]
     Active Substance: OZANIMOD HYDROCHLORIDE
     Indication: Multiple sclerosis

REACTIONS (6)
  - Weight increased [Unknown]
  - Pain [Unknown]
  - Alopecia [Unknown]
  - Adverse event [Unknown]
  - Pain [Unknown]
  - Eye pain [Unknown]

NARRATIVE: CASE EVENT DATE: 20220701
